FAERS Safety Report 9973482 (Version 4)
Quarter: 2014Q2

REPORT INFORMATION
  Report Type: Spontaneous
  Country: CZ (occurrence: CZ)
  Receive Date: 20140306
  Receipt Date: 20140408
  Transmission Date: 20141212
  Serious: Yes (Death)
  Sender: FDA-Public Use
  Company Number: CZ-PFIZER INC-2014059498

PATIENT
  Age: 74 Year
  Sex: Male
  Weight: 68 kg

DRUGS (17)
  1. ZYVOXID [Suspect]
     Indication: STAPHYLOCOCCAL INFECTION
     Dosage: 600 MG, 2X/DAY
     Route: 048
     Dates: start: 20140204, end: 20140207
  2. ZYVOXID [Suspect]
     Indication: STAPHYLOCOCCAL INFECTION
     Dosage: 600 MG, 2X/DAY
     Route: 051
     Dates: start: 20140208, end: 20140209
  3. CLEXANE [Concomitant]
     Dosage: 0.4 ML, 1X/DAY
  4. TRALGIT [Concomitant]
     Indication: PAIN
     Dosage: 50 (UNITS UNKNOWN), AS NEEDED
  5. PARALEN [Concomitant]
     Indication: PYREXIA
     Dosage: UNK
  6. CALCICHEW-D3 [Concomitant]
     Dosage: 1 DF, 1X/DAY
  7. CITALEC [Concomitant]
     Dosage: 10 (UNITS UNKNOWN) ONCE DAILY
  8. HELICID [Concomitant]
     Dosage: 20 MG, 1X/DAY
  9. ZALDIAR [Concomitant]
     Indication: PAIN
     Dosage: UNK
  10. MUCOSOLVAN [Concomitant]
     Dosage: 10 DROPS THRICE DAILY
     Route: 048
  11. ISICOM [Concomitant]
     Indication: PARKINSON^S DISEASE
     Dosage: 200 MG, 4X/DAY
     Route: 048
  12. BETALOC [Concomitant]
     Dosage: 25 MG, 1X/DAY IN THE MORNING
  13. LACIDOFIL [Concomitant]
     Dosage: 1 DF, 3X/DAY
     Route: 048
  14. PAMYCON [Concomitant]
  15. LOZAP [Concomitant]
     Dosage: 50 MG, 3X/DAY
  16. GENTAMICIN [Concomitant]
     Dosage: UNK
     Dates: start: 20140131, end: 20140203
  17. BISEPTOL [Concomitant]
     Dosage: UNK
     Dates: start: 20140131, end: 20140203

REACTIONS (2)
  - Leukopenia [Fatal]
  - Aplastic anaemia [Fatal]
